FAERS Safety Report 7249224-9 (Version None)
Quarter: 2011Q1

REPORT INFORMATION
  Report Type: 
  Country: None (occurrence: None)
  Receive Date: 20110128
  Receipt Date: 20110119
  Transmission Date: 20110831
  Serious: Yes (Hospitalization, Other)
  Sender: FDA-Public Use
  Company Number: TN-JNJFOC-20110106165

PATIENT
  Age: 39 Year
  Sex: Male

DRUGS (4)
  1. CHLORPROMAZINE [Suspect]
     Indication: COGNITIVE DISORDER
     Route: 065
  2. HALOPERIDOL [Suspect]
     Indication: PSYCHOTIC DISORDER
     Route: 065
  3. HALOPERIDOL [Suspect]
     Indication: COGNITIVE DISORDER
     Route: 065
  4. CHLORPROMAZINE [Suspect]
     Indication: PSYCHOTIC DISORDER
     Route: 065

REACTIONS (8)
  - ELECTROCARDIOGRAM QT PROLONGED [None]
  - BLOOD PARATHYROID HORMONE DECREASED [None]
  - PARAESTHESIA [None]
  - EXTRAPYRAMIDAL DISORDER [None]
  - PERNICIOUS ANAEMIA [None]
  - CONDITION AGGRAVATED [None]
  - FAHR'S DISEASE [None]
  - BLOOD PHOSPHORUS INCREASED [None]
